FAERS Safety Report 6872089-1 (Version None)
Quarter: 2010Q3

REPORT INFORMATION
  Report Type: 
  Country: None (occurrence: None)
  Receive Date: 20100723
  Receipt Date: 20100713
  Transmission Date: 20110219
  Serious: Yes (Hospitalization)
  Sender: FDA-Public Use
  Company Number: IE-PFIZER INC-2010072519

PATIENT
  Age: 21 Year
  Sex: Female

DRUGS (6)
  1. PHENYTOIN SODIUM CAP [Suspect]
     Indication: STATUS EPILEPTICUS
     Dosage: 250MG/5ML
     Route: 042
     Dates: start: 20100601, end: 20100601
  2. TOPIRAMATE [Concomitant]
     Indication: EPILEPSY
     Dosage: 500 MG, 2X/DAY
     Route: 048
  3. LEVETIRACETAM [Concomitant]
     Indication: EPILEPSY
     Dosage: 1000 MG, 2X/DAY
     Route: 048
  4. VALPROATE SODIUM [Concomitant]
     Indication: EPILEPSY
     Dosage: 1200 MG, 2X/DAY
     Route: 048
  5. ZONISAMIDE [Concomitant]
     Indication: EPILEPSY
     Dosage: 250 MG, 2X/DAY
     Route: 048
  6. CEFALEXIN [Concomitant]
     Indication: URINARY TRACT INFECTION
     Dosage: 500 MG, 2X/DAY
     Route: 048
     Dates: end: 20100601

REACTIONS (3)
  - CELLULITIS [None]
  - INJECTION SITE ULCER [None]
  - THROMBOPHLEBITIS [None]
